FAERS Safety Report 11516889 (Version 1)
Quarter: 2015Q3

REPORT INFORMATION
  Report Type: Spontaneous
  Country: US (occurrence: US)
  Receive Date: 20150917
  Receipt Date: 20150917
  Transmission Date: 20151125
  Serious: Yes (Other)
  Sender: FDA-Public Use
  Company Number: US-BAYER-2015-412439

PATIENT
  Sex: Female

DRUGS (1)
  1. MIRENA [Suspect]
     Active Substance: LEVONORGESTREL
     Dosage: 20 MCG/24HR, CONT
     Route: 015

REACTIONS (9)
  - Weight increased [Unknown]
  - Headache [Unknown]
  - Dyspepsia [Unknown]
  - Night sweats [Unknown]
  - Drug ineffective [None]
  - Back pain [Unknown]
  - Pregnancy with contraceptive device [None]
  - Alopecia [Unknown]
  - Insomnia [Unknown]
